FAERS Safety Report 26023301 (Version 1)
Quarter: 2025Q4

REPORT INFORMATION
  Report Type: Spontaneous
  Country: EU (occurrence: EU)
  Receive Date: 20251110
  Receipt Date: 20251110
  Transmission Date: 20260118
  Serious: Yes (Hospitalization, Other)
  Sender: JOHNSON AND JOHNSON
  Company Number: EU-CELLTRION INC.-2025ES039776

PATIENT
  Age: 66 Year
  Sex: Male

DRUGS (3)
  1. USTEKINUMAB [Suspect]
     Active Substance: USTEKINUMAB
     Indication: Psoriasis
  2. ADALIMUMAB [Suspect]
     Active Substance: ADALIMUMAB
     Indication: Psoriasis
     Dosage: DISCONTINUED A FEW  MONTHS LATER DUE TO A CHANGE OF CENTER.
  3. ADALIMUMAB [Suspect]
     Active Substance: ADALIMUMAB
     Dosage: TWO MONTHS AFTER ITS REINTRODUCTION, HE  DEVELOPED FEVER AND LOW BACK PAIN, REQUIRING HOSPITALIZATIO

REACTIONS (2)
  - Intervertebral discitis [Recovering/Resolving]
  - Urticaria [Unknown]
